FAERS Safety Report 4358041-9 (Version None)
Quarter: 2004Q2

REPORT INFORMATION
  Report Type: 
  Country: None (occurrence: None)
  Receive Date: 20040514
  Receipt Date: 20040506
  Transmission Date: 20050107
  Serious: Yes (Other)
  Sender: FDA-Public Use
  Company Number: 200414825GDDC

PATIENT
  Age: 67 Year
  Sex: Female

DRUGS (12)
  1. KETEK [Suspect]
     Indication: BRONCHITIS ACUTE
     Route: 048
     Dates: start: 20040423, end: 20040427
  2. WARFARIN SODIUM [Suspect]
     Indication: CARDIAC VALVE DISEASE
     Dosage: DOSE: 3 MG PER DAY ALTERNATING WITH 2 MG THE OTHER DAY
     Route: 048
  3. SINGULAIR [Concomitant]
     Indication: ASTHMA
     Route: 048
  4. LOSEC [Concomitant]
     Route: 048
  5. ALTACE [Concomitant]
     Indication: HYPERTENSION
     Route: 048
  6. VITAMIN D [Concomitant]
     Route: 048
  7. DIGOXIN [Concomitant]
     Indication: CARDIAC FAILURE CONGESTIVE
     Route: 048
  8. ASPIRIN [Concomitant]
     Route: 048
  9. FUROSEMIDE [Concomitant]
     Route: 048
  10. NITRO-DUR [Concomitant]
     Indication: ARRHYTHMIA
     Dosage: DOSE: 0.4 MG/0.2
  11. ADVAIR DISKUS 100/50 [Concomitant]
     Indication: ASTHMA
     Dosage: DOSE: 500 /1 PUFF
     Route: 055
  12. K+10 [Concomitant]
     Dosage: DOSE: 1 TEASPOON (20 MEQ/15 ML) TWICE PER DAY
     Route: 048

REACTIONS (2)
  - DRUG INTERACTION [None]
  - INTERNATIONAL NORMALISED RATIO DECREASED [None]
